FAERS Safety Report 8328457-4 (Version None)
Quarter: 2012Q2

REPORT INFORMATION
  Report Type: 
  Country: None (occurrence: None)
  Receive Date: 20120502
  Receipt Date: 20120502
  Transmission Date: 20120825
  Serious: Yes (Other)
  Sender: FDA-Public Use
  Company Number: None

PATIENT
  Age: 66 Year
  Sex: Male
  Weight: 86.182 kg

DRUGS (1)
  1. ISOSORBIDE MONONITRATE [Suspect]
     Indication: ANGINA PECTORIS
     Dosage: |DOSAGETEXT: 1 TAB||STRENGTH: 30 MG||FREQ: 1 TIME A DAY||ROUTE: ORAL|
     Route: 048
     Dates: start: 20120428, end: 20120428

REACTIONS (7)
  - INFLUENZA LIKE ILLNESS [None]
  - PAIN IN EXTREMITY [None]
  - PAIN [None]
  - ANGIOPATHY [None]
  - NEURALGIA [None]
  - HEADACHE [None]
  - RASH [None]
